FAERS Safety Report 5764227-9 (Version None)
Quarter: 2008Q2

REPORT INFORMATION
  Report Type: 
  Country: None (occurrence: None)
  Receive Date: 20080610
  Receipt Date: 20080605
  Transmission Date: 20081010
  Serious: Yes (Hospitalization)
  Sender: FDA-Public Use
  Company Number: US-GENENTECH-259928

PATIENT
  Sex: Female
  Weight: 66.667 kg

DRUGS (14)
  1. BEVACIZUMAB [Suspect]
     Indication: HEAD AND NECK CANCER
     Dosage: 15 MG/KG, UNK
     Dates: start: 20080311
  2. ERLOTINIB [Suspect]
     Indication: HEAD AND NECK CANCER
     Dosage: 150 MG, QD
     Dates: start: 20080311
  3. PACLITAXEL [Suspect]
     Indication: HEAD AND NECK CANCER
     Dosage: 50 MG/M2, UNK
     Dates: start: 20080311
  4. RADIATION THERAPY [Suspect]
     Indication: HEAD AND NECK CANCER
     Dosage: UNK, QD
     Dates: start: 20080311
  5. CLONIDINE [Concomitant]
     Indication: DRUG USE FOR UNKNOWN INDICATION
     Dosage: 0.1 MG, 1/WEEK
  6. GABAPENTIN [Concomitant]
     Indication: NEUROPATHY PERIPHERAL
     Dosage: 800 MG, TID
     Route: 048
  7. NICOTINE [Concomitant]
     Indication: SMOKER
  8. DIFLUCAN [Concomitant]
     Indication: CANDIDIASIS
     Dosage: 100 MG, QD
     Route: 048
  9. COUMADIN [Concomitant]
     Indication: DRUG USE FOR UNKNOWN INDICATION
     Dosage: UNK, QD
     Route: 048
  10. LORTAB [Concomitant]
     Indication: PAIN
     Dosage: UNK, PRN
     Route: 048
  11. MAGIC MOUTHWASH (BENADRYL, CARAFATE, XYLOCAIN [Concomitant]
     Indication: CANDIDIASIS
     Dosage: 5 UNK, PRN
     Route: 048
  12. ATENOLOL [Concomitant]
     Indication: HYPERTENSION
     Dosage: 25 MG, QD
     Route: 048
  13. LORAZEPAM [Concomitant]
     Indication: ANXIETY
     Dosage: 2 MG, TID
     Route: 048
  14. CELEXA [Concomitant]
     Indication: DEPRESSION
     Dosage: 40 MG, QD

REACTIONS (2)
  - ALCOHOL WITHDRAWAL SYNDROME [None]
  - PYREXIA [None]
